FAERS Safety Report 4350685-3 (Version None)
Quarter: 2004Q2

REPORT INFORMATION
  Report Type: 
  Country: None (occurrence: None)
  Receive Date: 20040429
  Receipt Date: 20040429
  Transmission Date: 20050107
  Serious: Yes (Hospitalization)
  Sender: FDA-Public Use
  Company Number: None

PATIENT
  Age: 74 Year
  Sex: Male
  Weight: 84.369 kg

DRUGS (8)
  1. PROCRIT 40,000 ORTHOBIOTECH [Suspect]
     Indication: ANAEMIA
     Dosage: 40000 WEEKLY SUBCUTANEOUS
     Route: 058
     Dates: start: 20040324, end: 20040510
  2. PROCRIT 40,000 ORTHOBIOTECH [Suspect]
     Indication: NEOPLASM
     Dosage: 40000 WEEKLY SUBCUTANEOUS
     Route: 058
     Dates: start: 20040324, end: 20040510
  3. PROCRIT 20,000 ORTHOBIOTECH [Suspect]
     Indication: ANAEMIA
     Dosage: 20000 WEEKLY SUBCUTANEOUS
     Route: 058
     Dates: start: 20040407, end: 20040412
  4. PROCRIT 20,000 ORTHOBIOTECH [Suspect]
     Indication: NEOPLASM
     Dosage: 20000 WEEKLY SUBCUTANEOUS
     Route: 058
     Dates: start: 20040407, end: 20040412
  5. LASIX [Concomitant]
  6. LISINOPRIL [Concomitant]
  7. ASPIRIN [Concomitant]
  8. LANTUS [Concomitant]

REACTIONS (6)
  - CATHETER SITE DISCHARGE [None]
  - PNEUMONIA [None]
  - PURULENT DISCHARGE [None]
  - SPUTUM CULTURE POSITIVE [None]
  - STAPHYLOCOCCAL INFECTION [None]
  - STREPTOCOCCAL INFECTION [None]
